FAERS Safety Report 8045780-1 (Version None)
Quarter: 2012Q1

REPORT INFORMATION
  Report Type: 
  Country: None (occurrence: None)
  Receive Date: 20120113
  Receipt Date: 20120109
  Transmission Date: 20120608
  Serious: Yes (Hospitalization)
  Sender: FDA-Public Use
  Company Number: PT-GLAXOSMITHKLINE-B0774947A

PATIENT
  Sex: Female

DRUGS (1)
  1. ALLI [Suspect]
     Indication: WEIGHT DECREASED
     Route: 048
     Dates: start: 20101001, end: 20101201

REACTIONS (4)
  - PROCTALGIA [None]
  - SURGERY [None]
  - PRODUCT QUALITY ISSUE [None]
  - ANAL FISTULA [None]
